FAERS Safety Report 5322039-4 (Version None)
Quarter: 2007Q2

REPORT INFORMATION
  Report Type: 
  Country: None (occurrence: None)
  Receive Date: 20070507
  Receipt Date: 20070423
  Transmission Date: 20071010
  Serious: Yes (Disabling)
  Sender: FDA-Public Use
  Company Number: 100#03#2007-01437

PATIENT
  Age: 72 Year
  Sex: Male

DRUGS (5)
  1. CIPROFLOXACIN [Suspect]
     Indication: ASPERGILLOSIS
     Dosage: 500 MG
     Route: 048
     Dates: start: 20070209, end: 20070214
  2. BISOPROLOL FUMARATE [Concomitant]
  3. CALCICARD (DILTIAZEM HYDROCHLORIDE) (DILTIAZEM) [Concomitant]
  4. OXYTETRACYCLINE (OXYTETRACYCLINE) (OXYTETRACYCLINE) [Concomitant]
  5. PREDNISOLONE [Concomitant]

REACTIONS (4)
  - COLITIS [None]
  - TENDON INJURY [None]
  - TENDONITIS [None]
  - URINARY TRACT DISORDER [None]
